FAERS Safety Report 9452433 (Version 1)
Quarter: 2013Q3

REPORT INFORMATION
  Report Type: Report from Study
  Country: CA (occurrence: CA)
  Receive Date: 20130812
  Receipt Date: 20130812
  Transmission Date: 20140515
  Serious: Yes (Other)
  Sender: FDA-Public Use
  Company Number: CA-JNJFOC-20130804385

PATIENT
  Age: 59 Year
  Sex: Male
  Weight: 66.68 kg

DRUGS (2)
  1. REMICADE [Suspect]
     Indication: CROHN^S DISEASE
     Route: 042
     Dates: start: 201306
  2. REMICADE [Suspect]
     Indication: CROHN^S DISEASE
     Route: 042
     Dates: start: 20130514

REACTIONS (4)
  - Heart rate increased [Unknown]
  - Infusion related reaction [Unknown]
  - Chest pain [Unknown]
  - Headache [Unknown]
